FAERS Safety Report 22529839 (Version 1)
Quarter: 2023Q2

REPORT INFORMATION
  Report Type: Spontaneous
  Country: NL (occurrence: NL)
  Receive Date: 20230607
  Receipt Date: 20230607
  Transmission Date: 20230721
  Serious: Yes (Hospitalization)
  Sender: FDA-Public Use
  Company Number: None

PATIENT
  Age: 69 Year
  Sex: Male
  Weight: 63 kg

DRUGS (13)
  1. SIMVASTATIN [Interacting]
     Active Substance: SIMVASTATIN
     Indication: Myocardial infarction
     Dosage: STRENGTH: 40 MG, 1 DD 1 TABLET
     Dates: start: 20070928, end: 20230419
  2. REMIFENTANIL HYDROCHLORIDE [Interacting]
     Active Substance: REMIFENTANIL HYDROCHLORIDE
     Indication: Endoscopic retrograde cholangiopancreatography
     Dates: start: 20230418
  3. KETAMINE HYDROCHLORIDE [Interacting]
     Active Substance: KETAMINE HYDROCHLORIDE
     Indication: Endoscopic retrograde cholangiopancreatography
     Dates: start: 20230418
  4. PROPOFOL [Interacting]
     Active Substance: PROPOFOL
     Indication: Endoscopic retrograde cholangiopancreatography
     Dosage: INJECTION/INFUSION, ONE-TIME ADMINISTRATION, AT ERCP
     Dates: start: 20230418
  5. ASPIRIN [Concomitant]
     Active Substance: ASPIRIN
     Dosage: STRENGTH: 80 MG, TABLET, 80 MG
  6. METFORMIN HYDROCHLORIDE [Concomitant]
     Active Substance: METFORMIN HYDROCHLORIDE
     Dosage: STRENGTH: 850 MG, TABLET, 850 MG
  7. INSULINE DEGLUDEC, LIRAGLUTIDE [Concomitant]
     Dosage: STRENGTH: 100 U/ML, SOLUTION FOR INJECTION, 100 UNITS/ML
  8. METOPROLOL [Concomitant]
     Active Substance: METOPROLOL
     Dosage: STRENGTH: 50 MG, TABLET, 50 MG (MILLIGRAM)
  9. OXYCODONE HYDROCHLORIDE [Concomitant]
     Active Substance: OXYCODONE HYDROCHLORIDE
     Dosage: STRENGTH: 5 MG, ORODISPERSIBLE TABLET, 5 MG
  10. OXYCONTIN [Concomitant]
     Active Substance: OXYCODONE HYDROCHLORIDE
     Dosage: STRENGTH: 10 MG, MODIFIED-RELEASE TABLET, 10 MG (MILLIGRAMS)
  11. INSULIN ASPART [Concomitant]
     Active Substance: INSULIN ASPART
     Dosage: STRENGTH:100 U/ML, SOLUTION FOR INJECTION, 100 UNITS/ML (UNITS PER MILLILITER)
  12. NITROGLYCERIN [Concomitant]
     Active Substance: NITROGLYCERIN
     Dosage: SPRAY SUBLING, 0.4 MG/DOSE
  13. IRBESARTAN [Concomitant]
     Active Substance: IRBESARTAN
     Dosage: STRENGTH: 150 MG, TABLET, 150 MG

REACTIONS (3)
  - Drug interaction [Unknown]
  - Hyperkalaemia [Unknown]
  - Rhabdomyolysis [Unknown]

NARRATIVE: CASE EVENT DATE: 20230419
